FAERS Safety Report 5804970-6 (Version None)
Quarter: 2008Q3

REPORT INFORMATION
  Report Type: 
  Country: None (occurrence: None)
  Receive Date: 20080702
  Receipt Date: 20071126
  Transmission Date: 20090109
  Serious: Yes (Other)
  Sender: FDA-Public Use
  Company Number: US-WYE-H01454507

PATIENT
  Age: 35 Year
  Sex: Female

DRUGS (1)
  1. ADVIL [Suspect]
     Indication: NECK PAIN
     Dosage: 1000MG DAILY, ORAL
     Route: 048
     Dates: start: 19990101, end: 19990101

REACTIONS (3)
  - ABDOMINAL DISCOMFORT [None]
  - APHAGIA [None]
  - DIARRHOEA [None]
